FAERS Safety Report 21158095 (Version 1)
Quarter: 2022Q3

REPORT INFORMATION
  Report Type: Spontaneous
  Country: US (occurrence: US)
  Receive Date: 20220801
  Receipt Date: 20220801
  Transmission Date: 20221026
  Serious: No
  Sender: FDA-Public Use
  Company Number: US-MYLANLABS-2022M1080408

PATIENT
  Sex: Male
  Weight: 68.04 kg

DRUGS (1)
  1. SEMGLEE (INSULIN GLARGINE-YFGN) [Suspect]
     Active Substance: INSULIN GLARGINE-YFGN
     Indication: Type 1 diabetes mellitus
     Dosage: UNK UNK, HS (30 UNITS ONE DOSE AT NIGHT TIME)
     Route: 058

REACTIONS (3)
  - Agitation [Unknown]
  - Incorrect dose administered [Unknown]
  - Device issue [Unknown]
